FAERS Safety Report 11296863 (Version 1)
Quarter: 2015Q3

REPORT INFORMATION
  Report Type: Spontaneous
  Country: US (occurrence: US)
  Receive Date: 20150722
  Receipt Date: 20150722
  Transmission Date: 20151125
  Serious: No
  Sender: FDA-Public Use
  Company Number: US-ELI_LILLY_AND_COMPANY-US201008005129

PATIENT
  Sex: Male

DRUGS (1)
  1. EFFIENT [Suspect]
     Active Substance: PRASUGREL HYDROCHLORIDE
     Indication: CORONARY ARTERY DISEASE
     Dosage: 10 MG, UNKNOWN
     Dates: start: 20100312

REACTIONS (3)
  - General symptom [Recovered/Resolved]
  - Feeling abnormal [Recovered/Resolved]
  - Heart rate increased [Recovered/Resolved]
